FAERS Safety Report 14530974 (Version 1)
Quarter: 2018Q1

REPORT INFORMATION
  Report Type: Spontaneous
  Country: US (occurrence: US)
  Receive Date: 20180213
  Receipt Date: 20180213
  Transmission Date: 20180509
  Serious: No
  Sender: FDA-Public Use
  Company Number: None

PATIENT
  Sex: Female

DRUGS (3)
  1. B VITAMIN [Concomitant]
  2. MVI [Concomitant]
     Active Substance: VITAMINS
  3. KENALOG [Suspect]
     Active Substance: TRIAMCINOLONE ACETONIDE
     Indication: ACNE
     Dosage: ?          QUANTITY:1 INJECTION;OTHER FREQUENCY:ONE TIME;?
     Route: 058

REACTIONS (4)
  - Injection site indentation [None]
  - Injection site erythema [None]
  - Injection site reaction [None]
  - Injection site atrophy [None]

NARRATIVE: CASE EVENT DATE: 20171018
